FAERS Safety Report 11355314 (Version 1)
Quarter: 2015Q3

REPORT INFORMATION
  Report Type: Spontaneous
  Country: IT (occurrence: IT)
  Receive Date: 20150807
  Receipt Date: 20150807
  Transmission Date: 20151125
  Serious: Yes (Other)
  Sender: FDA-Public Use
  Company Number: IT-AUROBINDO-AUR-APL-2015-06979

PATIENT
  Age: 18 Year
  Sex: Male

DRUGS (1)
  1. SILDENAFIL 100MG AUROGRA [Suspect]
     Active Substance: SILDENAFIL
     Indication: PRODUCT USED FOR UNKNOWN INDICATION
     Route: 065

REACTIONS (3)
  - Drug screen positive [None]
  - Drug abuse [None]
  - Generalised tonic-clonic seizure [Unknown]
